FAERS Safety Report 11288985 (Version 1)
Quarter: 2015Q3

REPORT INFORMATION
  Report Type: Spontaneous
  Country: None (occurrence: US)
  Receive Date: 20150721
  Receipt Date: 20150721
  Transmission Date: 20151125
  Serious: No
  Sender: FDA-Public Use
  Company Number: US-UNITED THERAPEUTICS-UNT-2015-000042

PATIENT
  Age: 38 Year
  Sex: Female
  Weight: 68.93 kg

DRUGS (7)
  1. ADEMPAS [Suspect]
     Active Substance: RIOCIGUAT
     Indication: PRODUCT USED FOR UNKNOWN INDICATION
     Dosage: 2.5 MG, TID
     Route: 048
  2. REMODULIN [Suspect]
     Active Substance: TREPROSTINIL
     Indication: PULMONARY ARTERIAL HYPERTENSION
     Dosage: 0.075 ?G/KG/MIN, CONTINUING
     Route: 058
     Dates: start: 20100120
  3. REMODULIN [Suspect]
     Active Substance: TREPROSTINIL
     Dosage: 0.0758 ?G/KG/MIN, CONTINUING
     Route: 058
     Dates: start: 20100120
  4. REMODULIN [Suspect]
     Active Substance: TREPROSTINIL
     Dosage: UNK
  5. WARFARIN [Concomitant]
     Active Substance: WARFARIN
     Indication: PRODUCT USED FOR UNKNOWN INDICATION
  6. VIAGRA [Concomitant]
     Active Substance: SILDENAFIL CITRATE
     Indication: PRODUCT USED FOR UNKNOWN INDICATION
  7. OPSUMIT [Concomitant]
     Active Substance: MACITENTAN
     Indication: PRODUCT USED FOR UNKNOWN INDICATION

REACTIONS (13)
  - Infusion site pain [Unknown]
  - Constipation [Unknown]
  - Dyspnoea [Unknown]
  - Infusion site oedema [Unknown]
  - Hypotension [Unknown]
  - Dizziness [Unknown]
  - Erythema [Unknown]
  - Fatigue [Unknown]
  - Syncope [Unknown]
  - Laceration [Unknown]
  - Device issue [Unknown]
  - Road traffic accident [Unknown]
  - Flushing [Unknown]

NARRATIVE: CASE EVENT DATE: 20150129
